FAERS Safety Report 7659595-7 (Version None)
Quarter: 2011Q3

REPORT INFORMATION
  Report Type: 
  Country: None (occurrence: None)
  Receive Date: 20110805
  Receipt Date: 20110802
  Transmission Date: 20111222
  Serious: Yes (Death)
  Sender: FDA-Public Use
  Company Number: NZ-CELGENEUS-118-20785-11050673

PATIENT
  Sex: Male

DRUGS (8)
  1. ATORVASTATIN [Concomitant]
     Dosage: 20 MILLIGRAM
     Route: 065
  2. ERYTHROPOETIN [Concomitant]
     Dosage: 857.1429 UNKNOWN
     Route: 065
  3. FUROSEMIDE [Concomitant]
     Dosage: 40 MILLIGRAM
     Route: 065
  4. GLICLAZIDE [Concomitant]
     Dosage: 40 MILLIGRAM
     Route: 065
  5. THALIDOMIDE [Suspect]
     Indication: MULTIPLE MYELOMA
     Dosage: 50 MILLIGRAM
     Route: 048
     Dates: start: 20100504
  6. ALLOPURINOL [Concomitant]
     Dosage: 100 MILLIGRAM
     Route: 065
  7. CALCIUM CARBONATE [Concomitant]
     Dosage: 1.25 GRAM
     Route: 065
  8. CANDESARTAN CILEXETIL [Concomitant]
     Dosage: 4 MILLIGRAM
     Route: 065

REACTIONS (1)
  - MULTIPLE MYELOMA [None]
